FAERS Safety Report 4425185-2 (Version None)
Quarter: 2004Q3

REPORT INFORMATION
  Report Type: 
  Country: None (occurrence: None)
  Receive Date: 20040812
  Receipt Date: 20040812
  Transmission Date: 20050211
  Serious: No
  Sender: FDA-Public Use
  Company Number: None

PATIENT

DRUGS (1)
  1. IOBENGUANE SULFATE I 131 [Suspect]
     Indication: PHAEOCHROMOCYTOMA
     Dosage: IV 1.9 ML
     Route: 042
     Dates: start: 20040713

REACTIONS (3)
  - DIZZINESS [None]
  - HEART RATE INCREASED [None]
  - POST PROCEDURAL COMPLICATION [None]
